FAERS Safety Report 9577326 (Version 1)
Quarter: 2013Q4

REPORT INFORMATION
  Report Type: Spontaneous
  Country: US (occurrence: US)
  Receive Date: 20131001
  Receipt Date: 20131001
  Transmission Date: 20140711
  Serious: No
  Sender: FDA-Public Use
  Company Number: US-AMGEN-USASP2013007485

PATIENT
  Age: 54 Year
  Sex: Female

DRUGS (2)
  1. ENBREL [Suspect]
     Indication: PSORIATIC ARTHROPATHY
     Dosage: 50 MG, QWK
     Dates: start: 20130123
  2. METHOTREXATE [Concomitant]
     Dosage: 4 TABLETS WEEKLY
     Dates: start: 2011

REACTIONS (2)
  - Fatigue [Recovered/Resolved]
  - Pallor [Not Recovered/Not Resolved]
